FAERS Safety Report 6186801-0 (Version None)
Quarter: 2009Q2

REPORT INFORMATION
  Report Type: 
  Country: None (occurrence: None)
  Receive Date: 20090508
  Receipt Date: 20090508
  Transmission Date: 20091009
  Serious: Yes (Hospitalization)
  Sender: FDA-Public Use
  Company Number: None

PATIENT
  Age: 75 Year
  Sex: Male
  Weight: 111.13 kg

DRUGS (2)
  1. TRIMETHOPRIM-SULFAMETHOXAZOLE [Suspect]
     Dosage: 800/160 MG BID PO 5/500 MG OTHER PO
     Route: 048
     Dates: start: 20090407, end: 20090410
  2. TRIMETHOPRIM-SULFAMETHOXAZOLE [Suspect]
     Dosage: 800/160 MG BID PO 5/500 MG OTHER PO
     Route: 048
     Dates: end: 20090413

REACTIONS (2)
  - BLOOD GLUCOSE INCREASED [None]
  - HYPOGLYCAEMIA [None]
